FAERS Safety Report 8556217-8 (Version None)
Quarter: 2012Q3

REPORT INFORMATION
  Report Type: 
  Country: None (occurrence: None)
  Receive Date: 20120801
  Receipt Date: 20120724
  Transmission Date: 20120928
  Serious: No
  Sender: FDA-Public Use
  Company Number: US-US-EMD SERONO, INC.-7045333

PATIENT
  Sex: Female

DRUGS (16)
  1. OXYCONTIN [Concomitant]
  2. ASCORBIC ACID [Concomitant]
  3. SOMA [Concomitant]
  4. OXYBUTYNIN [Concomitant]
  5. SIMVASTATIN [Concomitant]
  6. VICODIN ES [Concomitant]
  7. VITAMIN B-12 [Concomitant]
  8. ESTRADIOL [Concomitant]
  9. NEURONTIN [Concomitant]
  10. REBIF [Suspect]
     Indication: PRODUCT USED FOR UNKNOWN INDICATION
     Route: 058
     Dates: start: 20100701
  11. VITAMIN D [Concomitant]
  12. LIBRAX [Concomitant]
  13. PAXIL CR [Concomitant]
  14. ASPIRIN [Concomitant]
  15. FOLIC ACID [Concomitant]
  16. AMBIEN [Concomitant]

REACTIONS (3)
  - FATIGUE [None]
  - INJECTION SITE PAIN [None]
  - INJECTION SITE HAEMATOMA [None]
